FAERS Safety Report 8094619-7 (Version None)
Quarter: 2011Q4

REPORT INFORMATION
  Report Type: 
  Country: None (occurrence: None)
  Receive Date: 20111222
  Receipt Date: 20110928
  Transmission Date: 20120403
  Serious: Yes (Hospitalization)
  Sender: FDA-Public Use
  Company Number: UTC-010620

PATIENT
  Age: 62 Year
  Sex: Female
  Weight: 83.19 kg

DRUGS (1)
  1. TYVASO [Suspect]
     Indication: PULMONARY ARTERIAL HYPERTENSION
     Dosage: 216 MCG  (54 MCG, 4 IN 1 D), INHALATION
     Route: 055
     Dates: start: 20110830

REACTIONS (2)
  - PERICARDITIS [None]
  - HEART RATE INCREASED [None]
